FAERS Safety Report 4336074-6 (Version None)
Quarter: 2004Q1

REPORT INFORMATION
  Report Type: 
  Country: None (occurrence: None)
  Receive Date: 20040329
  Receipt Date: 20040105
  Transmission Date: 20041129
  Serious: No
  Sender: FDA-Public Use
  Company Number: USA040155804

PATIENT
  Age: 8 Year
  Sex: Female
  Weight: 23 kg

DRUGS (2)
  1. STRATTERA [Suspect]
     Indication: ATTENTION DEFICIT/HYPERACTIVITY DISORDER
     Dosage: 40 MG/IN THE MORNING
     Dates: start: 20031101
  2. CLARITIN [Concomitant]

REACTIONS (4)
  - ABNORMAL SENSATION IN EYE [None]
  - EYE PRURITUS [None]
  - MADAROSIS [None]
  - PRESCRIBED OVERDOSE [None]
